FAERS Safety Report 11446756 (Version 1)
Quarter: 2015Q3

REPORT INFORMATION
  Report Type: Spontaneous
  Country: US (occurrence: US)
  Receive Date: 20150902
  Receipt Date: 20150902
  Transmission Date: 20151125
  Serious: No
  Sender: FDA-Public Use
  Company Number: US-BAYER-2015-406151

PATIENT
  Age: 7 Year
  Sex: Female
  Weight: 24.94 kg

DRUGS (3)
  1. MIRALAX [Suspect]
     Active Substance: POLYETHYLENE GLYCOL 3350
     Dosage: UNK DF, PRN
  2. FLINTSTONES GUMMIES [Suspect]
     Active Substance: VITAMINS
     Dosage: 5 DF, ONCE
     Route: 048
     Dates: start: 20150817, end: 20150817
  3. FLINTSTONES GUMMIES [Suspect]
     Active Substance: VITAMINS
     Dosage: UNK
     Route: 048

REACTIONS (3)
  - Product use issue [Unknown]
  - Accidental exposure to product by child [Unknown]
  - Abdominal pain upper [Recovered/Resolved]

NARRATIVE: CASE EVENT DATE: 20150817
